FAERS Safety Report 6125617-8 (Version None)
Quarter: 2009Q1

REPORT INFORMATION
  Report Type: 
  Country: None (occurrence: None)
  Receive Date: 20090320
  Receipt Date: 20090312
  Transmission Date: 20090719
  Serious: Yes (Hospitalization, Other)
  Sender: FDA-Public Use
  Company Number: US-ROCHE-621463

PATIENT
  Sex: Female

DRUGS (3)
  1. KETOROLAC [Suspect]
     Indication: CHEST PAIN
     Route: 065
  2. SOLIRIS [Suspect]
     Indication: DRUG USE FOR UNKNOWN INDICATION
     Dosage: FORM: CONCENTRATE FOR SOLUTION FOR INFUSION, 10 MG/ML
     Route: 042
     Dates: start: 20080211
  3. CONTRAST MEDIA [Suspect]
     Dosage: INDICATION: PELVIC CT SCAN
     Route: 042

REACTIONS (5)
  - HAEMOLYSIS [None]
  - LUNG INFILTRATION [None]
  - PERICARDITIS [None]
  - RENAL TUBULAR NECROSIS [None]
  - VASCULAR ACCESS COMPLICATION [None]
